FAERS Safety Report 9519245 (Version 1)
Quarter: 2013Q1

REPORT INFORMATION
  Report Type: Spontaneous
  Country: US (occurrence: None)
  Receive Date: 20130305
  Receipt Date: 20130305
  Transmission Date: 20140127
  Serious: Yes (Hospitalization, Other)
  Sender: FDA-Public Use
  Company Number: 163-21880-11123420

PATIENT
  Age: 69 Year
  Sex: Female

DRUGS (6)
  1. REVLIMID [Suspect]
     Indication: PLASMA CELL MYELOMA
     Route: 048
     Dates: start: 201110
  2. LACTINEX (LACTINEX) (TABLETS) [Concomitant]
  3. NYSTATIN (NYSTATIN) [Concomitant]
  4. METAMUCIL [Concomitant]
  5. ACYCLOVIR (ACICLOVIR) (ACICLOVIR) [Concomitant]
  6. PRILOSEC [Concomitant]

REACTIONS (2)
  - Clostridium difficile colitis [None]
  - Osteomyelitis [None]
